FAERS Safety Report 9057261 (Version 1)
Quarter: 2013Q1

REPORT INFORMATION
  Report Type: Report from Study
  Country: JP (occurrence: JP)
  Receive Date: 20130131
  Receipt Date: 20130131
  Transmission Date: 20140127
  Serious: Yes (Other)
  Sender: FDA-Public Use
  Company Number: JP-GLAXOSMITHKLINE-B0860270A

PATIENT
  Age: 50 None
  Sex: Female
  Weight: 48 kg

DRUGS (14)
  1. TYKERB [Suspect]
     Indication: BREAST CANCER
     Route: 048
     Dates: start: 20090825, end: 20090910
  2. TYKERB [Suspect]
     Indication: BREAST CANCER
     Route: 048
     Dates: start: 20091015, end: 20091021
  3. TYKERB [Suspect]
     Indication: BREAST CANCER
     Route: 048
     Dates: start: 20091022, end: 20091028
  4. TYKERB [Suspect]
     Indication: BREAST CANCER
     Route: 048
     Dates: start: 20091029, end: 20110629
  5. XELODA [Suspect]
     Route: 048
     Dates: start: 20090825, end: 20090909
  6. XELODA [Suspect]
     Route: 048
     Dates: start: 20091124, end: 20091231
  7. GASPORT [Concomitant]
     Indication: GASTRITIS
     Route: 048
  8. LAC-B [Concomitant]
     Indication: PROPHYLAXIS AGAINST DIARRHOEA
     Route: 048
  9. NAIXAN [Concomitant]
     Indication: HEADACHE
     Route: 048
     Dates: end: 20090910
  10. VOLTAREN [Concomitant]
     Indication: HEADACHE
     Route: 048
     Dates: start: 20090929, end: 200910
  11. CHINESE MEDICINE [Concomitant]
     Indication: MENOPAUSAL SYMPTOMS
     Route: 048
  12. GABAPEN [Concomitant]
     Indication: SEDATION
     Route: 048
     Dates: start: 20091029
  13. EXEMESTANE [Concomitant]
     Indication: BREAST CANCER
     Route: 048
     Dates: start: 20100806
  14. VITAMEDIN [Concomitant]
     Indication: PROPHYLAXIS
     Route: 048
     Dates: start: 20100219

REACTIONS (5)
  - Bile duct stone [Recovered/Resolved]
  - Diarrhoea [Recovering/Resolving]
  - Palmar-plantar erythrodysaesthesia syndrome [Recovered/Resolved]
  - Hepatic function abnormal [Recovered/Resolved]
  - Paronychia [Recovered/Resolved]
